FAERS Safety Report 20613967 (Version 1)
Quarter: 2022Q1

REPORT INFORMATION
  Report Type: Spontaneous
  Country: BR (occurrence: None)
  Receive Date: 20220319
  Receipt Date: 20220319
  Transmission Date: 20220423
  Serious: Yes (Death)
  Sender: FDA-Public Use
  Company Number: BR-ROCHE-3049746

PATIENT
  Sex: Female

DRUGS (1)
  1. XELODA [Suspect]
     Active Substance: CAPECITABINE
     Indication: Product used for unknown indication
     Dosage: 1500 MG/DAY
     Route: 048
     Dates: start: 20220112, end: 20220123

REACTIONS (7)
  - Cardio-respiratory arrest [Fatal]
  - Aspiration [Fatal]
  - Depressed level of consciousness [Fatal]
  - Septic shock [Fatal]
  - Abdominal pain upper [Fatal]
  - Vomiting [Fatal]
  - Nausea [Fatal]

NARRATIVE: CASE EVENT DATE: 20220112
